FAERS Safety Report 10073516 (Version 1)
Quarter: 2014Q2

REPORT INFORMATION
  Report Type: Report from Study
  Country: US (occurrence: US)
  Receive Date: 20140411
  Receipt Date: 20140411
  Transmission Date: 20141212
  Serious: Yes (Life-Threatening, Hospitalization)
  Sender: FDA-Public Use
  Company Number: US-JNJFOC-20140406686

PATIENT
  Age: 59 Year
  Sex: Female

DRUGS (4)
  1. NUCYNTA [Suspect]
     Indication: PRODUCT USED FOR UNKNOWN INDICATION
     Route: 065
  2. VERAPAMIL [Suspect]
     Indication: PRODUCT USED FOR UNKNOWN INDICATION
     Route: 065
  3. PRAMIPEXOLE [Suspect]
     Indication: PRODUCT USED FOR UNKNOWN INDICATION
     Route: 065
  4. METHADONE [Interacting]
     Indication: PRODUCT USED FOR UNKNOWN INDICATION
     Route: 065

REACTIONS (12)
  - Adverse event [Recovering/Resolving]
  - Fall [Recovering/Resolving]
  - Overdose [Unknown]
  - Depressed level of consciousness [Unknown]
  - Respiratory depression [Recovering/Resolving]
  - Renal failure acute [Unknown]
  - Pneumonia aspiration [Unknown]
  - Drug interaction [Unknown]
  - Incoherent [Recovering/Resolving]
  - Speech disorder [Recovering/Resolving]
  - Ischaemic hepatitis [Unknown]
  - Agitation [Unknown]
